FAERS Safety Report 23053039 (Version 1)
Quarter: 2023Q4

REPORT INFORMATION
  Report Type: Spontaneous
  Country: FR (occurrence: FR)
  Receive Date: 20231011
  Receipt Date: 20231011
  Transmission Date: 20240110
  Serious: Yes (Hospitalization)
  Sender: FDA-Public Use
  Company Number: None

PATIENT
  Age: 60 Year
  Sex: Female
  Weight: 58 kg

DRUGS (6)
  1. METHOTREXATE [Suspect]
     Active Substance: METHOTREXATE
     Indication: Desmoid tumour
     Dates: start: 20230721, end: 20230721
  2. NAVELBINE [Suspect]
     Active Substance: VINORELBINE TARTRATE
     Indication: Desmoid tumour
     Dates: start: 20230721, end: 20230721
  3. DOLIPRANE [Concomitant]
     Active Substance: ACETAMINOPHEN
     Dosage: DOLIPRANE 1000 MG, TABLET
  4. CHOLECALCIFEROL [Concomitant]
     Active Substance: CHOLECALCIFEROL
  5. TAHOR [Concomitant]
     Active Substance: ATORVASTATIN CALCIUM
  6. MELATONIN [Concomitant]
     Active Substance: MELATONIN

REACTIONS (2)
  - Hepatic cytolysis [Recovering/Resolving]
  - Febrile bone marrow aplasia [Recovered/Resolved]

NARRATIVE: CASE EVENT DATE: 20230726
